FAERS Safety Report 22658460 (Version 1)
Quarter: 2023Q2

REPORT INFORMATION
  Report Type: Spontaneous
  Country: US (occurrence: US)
  Receive Date: 20230630
  Receipt Date: 20230630
  Transmission Date: 20230722
  Serious: No
  Sender: FDA-Public Use
  Company Number: US-APOTEX-2023AP009156

PATIENT
  Sex: Male

DRUGS (2)
  1. OLOPATADINE HYDROCHLORIDE [Suspect]
     Active Substance: OLOPATADINE HYDROCHLORIDE
     Indication: Product used for unknown indication
     Dosage: 2 SPRAYS IN EACH NOSTRIL IN MORNING AND 1 SPRAY IN EACH NOSTRIL AT NIGHT
     Route: 045
  2. OLOPATADINE HYDROCHLORIDE [Suspect]
     Active Substance: OLOPATADINE HYDROCHLORIDE
     Dosage: 2 SPRAYS IN EACH NOSTRIL IN MORNING AND 1 SPRAY IN EACH NOSTRIL AT NIGHT
     Route: 045

REACTIONS (3)
  - Product dose omission issue [Unknown]
  - Product packaging quantity issue [Unknown]
  - Product delivery mechanism issue [Unknown]
